FAERS Safety Report 19865178 (Version 2)
Quarter: 2021Q4

REPORT INFORMATION
  Report Type: Spontaneous
  Country: AR (occurrence: AR)
  Receive Date: 20210921
  Receipt Date: 20211001
  Transmission Date: 20220303
  Serious: Yes (Other)
  Sender: FDA-Public Use
  Company Number: AR-PFIZER INC-202101182660

PATIENT
  Age: 62 Year
  Sex: Female

DRUGS (4)
  1. XELJANZ [Suspect]
     Active Substance: TOFACITINIB CITRATE
     Indication: Rheumatoid arthritis
     Dosage: 5 MG, 2X/DAY
     Dates: start: 20180201
  2. BLOKIUM B12 [BETAMETHASONE;CYANOCOBALAMIN;DICLOFENAC POTASSIUM] [Concomitant]
     Dosage: UNK
  3. PROPOXYPHENE HYDROCHLORIDE [Concomitant]
     Active Substance: PROPOXYPHENE HYDROCHLORIDE
     Dosage: UNK
  4. MORPHINE [Concomitant]
     Active Substance: MORPHINE
     Dosage: UNK

REACTIONS (4)
  - Gait inability [Not Recovered/Not Resolved]
  - Spinal disorder [Not Recovered/Not Resolved]
  - Visual impairment [Not Recovered/Not Resolved]
  - Pain in extremity [Not Recovered/Not Resolved]

NARRATIVE: CASE EVENT DATE: 20210101
